FAERS Safety Report 18446910 (Version 1)
Quarter: 2020Q4

REPORT INFORMATION
  Report Type: Spontaneous
  Country: US (occurrence: US)
  Receive Date: 20201030
  Receipt Date: 20201030
  Transmission Date: 20210114
  Serious: Yes (Disabling)
  Sender: FDA-Public Use
  Company Number: None

PATIENT
  Age: 63 Year
  Sex: Female
  Weight: 58 kg

DRUGS (1)
  1. REFRESH OPTIVE SINGLE VIAL [Suspect]
     Active Substance: CARBOXYMETHYLCELLULOSE SODIUM\GLYCERIN
     Indication: DRY EYE
     Dosage: ?          QUANTITY:8 DROP(S);OTHER ROUTE:IN EACH EYE?
     Dates: start: 20190620, end: 20201028

REACTIONS (3)
  - Gastritis [None]
  - Abdominal pain [None]
  - Gastric mucosa erythema [None]

NARRATIVE: CASE EVENT DATE: 20190620
